FAERS Safety Report 14072463 (Version 1)
Quarter: 2017Q4

REPORT INFORMATION
  Report Type: Spontaneous
  Country: US (occurrence: None)
  Receive Date: 20171011
  Receipt Date: 20171011
  Transmission Date: 20180321
  Serious: Yes (Hospitalization)
  Sender: FDA-Public Use
  Company Number: None

PATIENT
  Age: 55 Year
  Sex: Male
  Weight: 74.2 kg

DRUGS (3)
  1. ELOXATIN [Suspect]
     Active Substance: OXALIPLATIN
     Dates: end: 20170725
  2. LEUCOVORIN CALCIUM. [Suspect]
     Active Substance: LEUCOVORIN CALCIUM
     Dates: end: 20170725
  3. 5-FLUOROURACIL (5-FU) [Suspect]
     Active Substance: FLUOROURACIL
     Dates: end: 20170727

REACTIONS (14)
  - Hypoxia [None]
  - Sepsis [None]
  - Pain [None]
  - Anastomotic leak [None]
  - Constipation [None]
  - Small intestinal obstruction [None]
  - Postoperative ileus [None]
  - Oliguria [None]
  - Hypotension [None]
  - Vomiting [None]
  - Nausea [None]
  - Acute kidney injury [None]
  - Haematoma [None]
  - Anorectal disorder [None]

NARRATIVE: CASE EVENT DATE: 20171004
